FAERS Safety Report 14554403 (Version 1)
Quarter: 2018Q1

REPORT INFORMATION
  Report Type: Spontaneous
  Country: US (occurrence: US)
  Receive Date: 20180217
  Receipt Date: 20180217
  Transmission Date: 20180509
  Serious: Yes (Disabling)
  Sender: FDA-Public Use
  Company Number: None

PATIENT
  Sex: Female
  Weight: 51.75 kg

DRUGS (5)
  1. CIPROFLOACIN [Suspect]
     Active Substance: CIPROFLOXACIN
     Indication: URINARY TRACT INFECTION
     Dosage: ?          QUANTITY:1 TABLET(S);?
     Route: 048
     Dates: start: 20170913, end: 20170918
  2. HUMULIN N [Concomitant]
     Active Substance: INSULIN HUMAN
  3. HUMULIN R [Concomitant]
     Active Substance: INSULIN HUMAN
  4. RAINBOW LIGHT PRENATAL ORGANIC MULTI VITAMINS [Concomitant]
  5. DHA ALGAL PILLS [Concomitant]

REACTIONS (10)
  - Tendon pain [None]
  - Injury [None]
  - Loss of personal independence in daily activities [None]
  - Arthralgia [None]
  - Pain [None]
  - Pain in extremity [None]
  - Paraesthesia [None]
  - Pseudomonas infection [None]
  - Pyelonephritis [None]
  - Gait disturbance [None]

NARRATIVE: CASE EVENT DATE: 20170915
